FAERS Safety Report 18933345 (Version 1)
Quarter: 2021Q1

REPORT INFORMATION
  Report Type: Spontaneous
  Country: US (occurrence: US)
  Receive Date: 20210223
  Receipt Date: 20210223
  Transmission Date: 20210420
  Serious: Yes (Hospitalization)
  Sender: FDA-Public Use
  Company Number: None

PATIENT
  Age: 72 Year
  Sex: Female

DRUGS (15)
  1. SILDENAFIL. [Concomitant]
     Active Substance: SILDENAFIL
  2. DULOXETINE. [Concomitant]
     Active Substance: DULOXETINE
  3. CRANBERRY FRUIT EXTRACT [Concomitant]
  4. FUROSEMIDE. [Concomitant]
     Active Substance: FUROSEMIDE
  5. AMBRISENTAN 10MG TABLETS 30/BO: 10MG [Suspect]
     Active Substance: AMBRISENTAN
     Indication: PULMONARY HYPERTENSION
     Route: 048
     Dates: start: 20200826
  6. FAMOTIDINE. [Concomitant]
     Active Substance: FAMOTIDINE
  7. VITAMIN D3 [Concomitant]
     Active Substance: CHOLECALCIFEROL
  8. K?TAB [Concomitant]
     Active Substance: POTASSIUM CHLORIDE
  9. ATORVASTATIN [Concomitant]
     Active Substance: ATORVASTATIN
  10. FERROUS SULFATE. [Concomitant]
     Active Substance: FERROUS SULFATE
  11. PROLIA [Concomitant]
     Active Substance: DENOSUMAB
  12. TRAZODONE [Concomitant]
     Active Substance: TRAZODONE HYDROCHLORIDE
  13. TREPROSTINIL. [Concomitant]
     Active Substance: TREPROSTINIL
  14. LEVOTHYROXINE. [Concomitant]
     Active Substance: LEVOTHYROXINE
  15. CHOLESTYRAMINE. [Concomitant]
     Active Substance: CHOLESTYRAMINE

REACTIONS (5)
  - Abdominal distension [None]
  - Pulmonary hypertension [None]
  - Polyuria [None]
  - Hypotension [None]
  - Cardiogenic shock [None]

NARRATIVE: CASE EVENT DATE: 20210201
